FAERS Safety Report 8933256 (Version 1)
Quarter: 2012Q4

REPORT INFORMATION
  Report Type: 
  Country: BR (occurrence: BR)
  Receive Date: 20121129
  Receipt Date: 20121129
  Transmission Date: 20130627
  Serious: Yes (Hospitalization)
  Sender: FDA-Public Use
  Company Number: PHHY2012BR107323

PATIENT
  Sex: Male

DRUGS (2)
  1. FORASEQ [Suspect]
     Indication: LUNG DISORDER
     Dosage: UNK UKN, UNK
  2. DUOVENT [Suspect]

REACTIONS (2)
  - Cardiac disorder [Unknown]
  - Blood pressure abnormal [Unknown]
